FAERS Safety Report 7559157-6 (Version None)
Quarter: 2011Q2

REPORT INFORMATION
  Report Type: 
  Country: None (occurrence: None)
  Receive Date: 20110621
  Receipt Date: 20110608
  Transmission Date: 20111010
  Serious: Yes (Hospitalization)
  Sender: FDA-Public Use
  Company Number: FR-PFIZER INC-2008039463

PATIENT
  Age: 64 Year
  Sex: Female

DRUGS (18)
  1. LEVETIRACETAM [Suspect]
     Indication: PROPHYLAXIS
     Route: 048
     Dates: start: 20070925, end: 20071214
  2. ENOXAPARIN SODIUM [Concomitant]
     Route: 058
  3. ZYVOX [Suspect]
     Indication: LUNG DISORDER
     Route: 042
     Dates: start: 20071029, end: 20071108
  4. SUFENTANIL CITRATE [Concomitant]
     Dates: start: 20070924, end: 20070924
  5. FENTANYL-100 [Concomitant]
     Dates: start: 20070924, end: 20071009
  6. URAPIDIL [Concomitant]
     Route: 048
     Dates: start: 20071107
  7. PRISTINAMYCIN [Suspect]
     Route: 048
     Dates: start: 20071029, end: 20071108
  8. AMIODARONE HYDROCHLORIDE [Concomitant]
     Dates: start: 20071024
  9. PAROXETINE HCL [Concomitant]
  10. TEICOPLANIN [Suspect]
     Indication: LUNG DISORDER
     Route: 042
     Dates: start: 20071024, end: 20071029
  11. AMIKACIN [Suspect]
     Route: 030
     Dates: start: 20071024, end: 20071029
  12. ASPEGIC 325 [Suspect]
     Indication: PROPHYLAXIS
     Route: 048
     Dates: start: 20070924, end: 20071212
  13. FLUCONAZOLE [Suspect]
     Indication: INFECTION
     Route: 048
     Dates: start: 20071029, end: 20071108
  14. PIPERACILLIN AND TAZOBACTAM [Suspect]
     Indication: LUNG DISORDER
     Route: 042
     Dates: start: 20071024, end: 20071029
  15. ZOLPIDEM TARTRATE [Concomitant]
  16. PROPOFOL [Concomitant]
     Dates: start: 20070924, end: 20070924
  17. INSULIN GLARGINE [Concomitant]
  18. ESOMEPRAZOLE MAGNESIUM [Concomitant]
     Dates: start: 20071212

REACTIONS (1)
  - PANCYTOPENIA [None]
